FAERS Safety Report 10028735 (Version 1)
Quarter: 2014Q1

REPORT INFORMATION
  Report Type: Spontaneous
  Country: BR (occurrence: BR)
  Receive Date: 20140321
  Receipt Date: 20140321
  Transmission Date: 20141002
  Serious: Yes (Death, Other)
  Sender: FDA-Public Use
  Company Number: BR-ELI_LILLY_AND_COMPANY-BR201403004879

PATIENT
  Age: 64 Year
  Sex: Female
  Weight: 52 kg

DRUGS (10)
  1. FORTEO [Suspect]
     Indication: OSTEOPOROSIS
     Dosage: 20 UG, QD
     Route: 058
     Dates: start: 201310, end: 20140310
  2. DIOSMINE [Concomitant]
     Indication: CARDIOVASCULAR DISORDER
     Dosage: UNK, QD
     Route: 065
  3. LOSARTAN [Concomitant]
     Indication: HYPERTENSION
     Dosage: UNK, UNKNOWN
     Route: 065
  4. SINVASTATINA [Concomitant]
     Indication: BLOOD CHOLESTEROL
     Dosage: UNK, QD
     Route: 065
  5. CALCIUM [Concomitant]
     Indication: OSTEOPOROSIS
     Dosage: UNK, UNKNOWN
     Route: 065
  6. VITAMIN D [Concomitant]
     Indication: OSTEOPOROSIS
     Dosage: UNK, QD
     Route: 065
  7. OMEPRAZOLE [Concomitant]
     Indication: GASTROINTESTINAL DISORDER
     Dosage: UNK, QD
     Route: 065
     Dates: start: 2009
  8. PREDNISONE [Concomitant]
     Indication: OSTEOPOROSIS
     Dosage: UNK, QD
     Route: 065
     Dates: start: 2012
  9. MELOXICAM [Concomitant]
     Indication: PAIN
     Dosage: UNK, QD
     Route: 065
     Dates: start: 201309
  10. CALCIUM CARBONATE [Concomitant]
     Indication: PRODUCT USED FOR UNKNOWN INDICATION
     Dosage: UNK, UNKNOWN
     Route: 065

REACTIONS (3)
  - Cardiogenic shock [Fatal]
  - Infarction [Unknown]
  - Drug interaction [Unknown]
